FAERS Safety Report 9982764 (Version 1)
Quarter: 2014Q1

REPORT INFORMATION
  Report Type: Report from Study
  Country: US (occurrence: US)
  Receive Date: 20140307
  Receipt Date: 20140307
  Transmission Date: 20141002
  Serious: No
  Sender: FDA-Public Use
  Company Number: US-ABBVIE-13P-163-1181027-00

PATIENT
  Age: 22 Year
  Sex: Female

DRUGS (5)
  1. HUMIRA [Suspect]
     Indication: CROHN^S DISEASE
     Dates: start: 201309
  2. NASCOBAL [Concomitant]
     Indication: VITAMIN SUPPLEMENTATION
     Dosage: B12 SPARY
     Route: 045
  3. PROBIOTICS [Concomitant]
     Indication: SUPPLEMENTATION THERAPY
  4. MULTI-VIT [Concomitant]
     Indication: VITAMIN SUPPLEMENTATION
  5. VIT D [Concomitant]
     Indication: VITAMIN SUPPLEMENTATION

REACTIONS (1)
  - Abdominal distension [Recovered/Resolved]
